FAERS Safety Report 24578520 (Version 5)
Quarter: 2024Q4

REPORT INFORMATION
  Report Type: Report from Study
  Country: NL (occurrence: NL)
  Receive Date: 20241105
  Receipt Date: 20241129
  Transmission Date: 20250114
  Serious: Yes (Hospitalization, Other)
  Sender: ABBVIE
  Company Number: NL-ABBVIE-5987087

PATIENT
  Age: 67 Year
  Sex: Male

DRUGS (28)
  1. CARBIDOPA\LEVODOPA [Suspect]
     Active Substance: CARBIDOPA\LEVODOPA
     Indication: Parkinson^s disease
     Dosage: CD:4.6ML/H?DOSE REDUCED?REMAINS AT 16 HOURS
     Route: 050
     Dates: start: 20241025, end: 20241029
  2. CARBIDOPA\LEVODOPA [Suspect]
     Active Substance: CARBIDOPA\LEVODOPA
     Dosage: MD:10.5ML; CD:4.0ML/H; ED:4.00ML?REMAINS AT 16 HOURS
     Route: 050
     Dates: start: 20241014, end: 20241015
  3. CARBIDOPA\LEVODOPA [Suspect]
     Active Substance: CARBIDOPA\LEVODOPA
     Dosage: LAST ADMIN DATE 2024?REMAINS AT 16 HOURS
     Route: 050
     Dates: start: 20240702
  4. CARBIDOPA\LEVODOPA [Suspect]
     Active Substance: CARBIDOPA\LEVODOPA
     Dosage: MD:15.5ML; CD:4.2ML/H; ED:1.00ML
     Route: 050
     Dates: start: 20241118
  5. CARBIDOPA\LEVODOPA [Suspect]
     Active Substance: CARBIDOPA\LEVODOPA
     Dosage: MD:11.5ML; CD:4.6ML/H; ED:4.00ML?DOSE INCREASED?REMAINS AT 16 HOURS
     Route: 050
     Dates: start: 20241015, end: 20241018
  6. CARBIDOPA\LEVODOPA [Suspect]
     Active Substance: CARBIDOPA\LEVODOPA
     Dosage: MD:14.5ML; CD:4.9ML/H; ED:4.00ML?DOSE INCREASED?REMAINS AT 16 HOURS
     Route: 050
     Dates: start: 20241022, end: 20241025
  7. CARBIDOPA\LEVODOPA [Suspect]
     Active Substance: CARBIDOPA\LEVODOPA
     Dosage: MD:14.5ML; CD:4.6ML/H; ED:6.00ML
     Route: 050
     Dates: start: 20241029, end: 20241112
  8. CARBIDOPA\LEVODOPA [Suspect]
     Active Substance: CARBIDOPA\LEVODOPA
     Dosage: MD:14.5ML; CD:4.4ML/H; ED:3.00ML
     Route: 050
     Dates: start: 20241112, end: 20241118
  9. CARBIDOPA\LEVODOPA [Suspect]
     Active Substance: CARBIDOPA\LEVODOPA
     Dosage: MD:11.5ML; CD:4.9ML/H; ED:4.00ML?DOSE INCREASED?REMAINS AT 16 HOURS
     Route: 050
     Dates: start: 20241018, end: 20241022
  10. CARBOMER [Concomitant]
     Active Substance: CARBOMER
     Indication: Product used for unknown indication
     Dosage: EACH EYE 1 STRIP
     Route: 047
  11. MELOXICAM [Concomitant]
     Active Substance: MELOXICAM
     Indication: Rheumatic disorder
     Dosage: TIME INTERVAL: AS NECESSARY: ONCE DAILY IF NECESSARY
     Route: 048
  12. NEXIUM [Concomitant]
     Active Substance: ESOMEPRAZOLE MAGNESIUM
     Indication: Gastrointestinal disorder prophylaxis
     Dosage: FORM STRENGTH: 40 MILLIGRAMS
  13. Oculotect [Concomitant]
     Indication: Product used for unknown indication
     Dosage: EACH EYE 1 DROP
     Route: 047
  14. CLONAZEPAM [Concomitant]
     Active Substance: CLONAZEPAM
     Indication: Restlessness
     Route: 048
  15. BENSERAZIDE HYDROCHLORIDE\LEVODOPA [Concomitant]
     Active Substance: BENSERAZIDE HYDROCHLORIDE\LEVODOPA
     Indication: Parkinson^s disease
     Dosage: HYDRODYNAMICALLY BALANCED SYSTEM FOR THE NIGHT
     Route: 048
  16. TOPICORT [Concomitant]
     Active Substance: DESOXIMETASONE
     Indication: Eczema
     Dosage: TIME INTERVAL: AS NECESSARY: 2.5 MG/G?OIL/WATER EMULSION
     Route: 065
  17. PSYLLIUM [Concomitant]
     Active Substance: PLANTAGO SEED
     Indication: Gastrointestinal motility disorder
     Dosage: TIME INTERVAL: AS NECESSARY
     Route: 065
  18. HYDROXOCOBALAMIN [Concomitant]
     Active Substance: HYDROXOCOBALAMIN
     Indication: Vitamin supplementation
     Route: 065
  19. OXYCODONE [Concomitant]
     Active Substance: OXYCODONE
     Indication: Analgesic therapy
     Dosage: TIME INTERVAL: AS NECESSARY
     Route: 065
  20. Dulcolax [Concomitant]
     Indication: Gastrointestinal motility disorder
     Dosage: TIME INTERVAL: AS NECESSARY: FORM STRENGTH: 5 MILLIGRAM
     Route: 065
  21. INFLIXIMAB [Concomitant]
     Active Substance: INFLIXIMAB
     Indication: Rheumatic disorder
     Dosage: FORM STRENGTH: 100 MILLIGRAMS
     Route: 042
  22. UNSPECIFIED INGREDIENT [Concomitant]
     Active Substance: UNSPECIFIED INGREDIENT
     Indication: Hypophosphataemia
     Dosage: TIME INTERVAL: 0.33333333 DAYS: DRINK
     Route: 065
  23. CLOPIDOGREL BESILATE [Concomitant]
     Active Substance: CLOPIDOGREL BESILATE
     Indication: Anticoagulant therapy
     Route: 048
  24. LOPERAMIDE HYDROCHLORIDE [Concomitant]
     Active Substance: LOPERAMIDE HYDROCHLORIDE
     Indication: Gastrointestinal motility disorder
     Dosage: IF NECESSARY 1 TO 2 TABLETS PER DAY
     Route: 048
  25. COSMETICS [Concomitant]
     Active Substance: COSMETICS
     Indication: Eczema
     Dosage: DAILY
     Route: 061
  26. ZOFRAN [Concomitant]
     Active Substance: ONDANSETRON HYDROCHLORIDE
     Indication: Nausea
     Dosage: TIME INTERVAL: AS NECESSARY: 2 TIMES A DAY IF NECESSARY
     Route: 065
  27. BENSERAZIDE HYDROCHLORIDE\LEVODOPA [Concomitant]
     Active Substance: BENSERAZIDE HYDROCHLORIDE\LEVODOPA
     Indication: Parkinson^s disease
     Dosage: TIME INTERVAL: AS NECESSARY
     Route: 048
  28. POLYETHYLENE GLYCOLS [Concomitant]
     Active Substance: POLYETHYLENE GLYCOLS
     Indication: Gastrointestinal motility disorder
     Route: 065

REACTIONS (60)
  - Hospitalisation [Recovered/Resolved]
  - On and off phenomenon [Recovered/Resolved]
  - Therapeutic response shortened [Not Recovered/Not Resolved]
  - Stoma site induration [Not Recovered/Not Resolved]
  - Therapeutic product effect incomplete [Not Recovered/Not Resolved]
  - Device issue [Not Recovered/Not Resolved]
  - Adverse drug reaction [Unknown]
  - Muscle tightness [Not Recovered/Not Resolved]
  - Gait disturbance [Not Recovered/Not Resolved]
  - Abdominal distension [Not Recovered/Not Resolved]
  - Erythema [Not Recovered/Not Resolved]
  - Asthenia [Not Recovered/Not Resolved]
  - Infection [Not Recovered/Not Resolved]
  - Stoma site pain [Not Recovered/Not Resolved]
  - Dysphagia [Recovered/Resolved]
  - Musculoskeletal stiffness [Not Recovered/Not Resolved]
  - Neck pain [Recovered/Resolved]
  - Tongue discomfort [Not Recovered/Not Resolved]
  - Choking [Not Recovered/Not Resolved]
  - Dizziness [Not Recovered/Not Resolved]
  - Oral discomfort [Not Recovered/Not Resolved]
  - Unevaluable event [Not Recovered/Not Resolved]
  - Body temperature decreased [Not Recovered/Not Resolved]
  - General physical health deterioration [Recovering/Resolving]
  - Parkinson^s disease [Not Recovered/Not Resolved]
  - Vision blurred [Not Recovered/Not Resolved]
  - Unevaluable event [Not Recovered/Not Resolved]
  - Unevaluable event [Not Recovered/Not Resolved]
  - Hypophosphataemia [Unknown]
  - Hypokalaemia [Unknown]
  - Dyskinesia [Recovered/Resolved]
  - Vitamin B12 deficiency [Unknown]
  - General physical health deterioration [Not Recovered/Not Resolved]
  - On and off phenomenon [Not Recovered/Not Resolved]
  - Mental disorder [Not Recovered/Not Resolved]
  - Conversion disorder [Not Recovered/Not Resolved]
  - Muscle rigidity [Recovering/Resolving]
  - Asphyxia [Not Recovered/Not Resolved]
  - Bradykinesia [Not Recovered/Not Resolved]
  - Unevaluable event [Not Recovered/Not Resolved]
  - Faeces hard [Recovered/Resolved]
  - Depressed mood [Not Recovered/Not Resolved]
  - Dyspnoea [Not Recovered/Not Resolved]
  - Gastrointestinal motility disorder [Recovered/Resolved]
  - Tension [Not Recovered/Not Resolved]
  - Illness [Not Recovered/Not Resolved]
  - Stress [Not Recovered/Not Resolved]
  - Visual impairment [Not Recovered/Not Resolved]
  - Frequent bowel movements [Recovered/Resolved]
  - Motor dysfunction [Recovered/Resolved]
  - Nocturia [Unknown]
  - Euphoric mood [Not Recovered/Not Resolved]
  - Restlessness [Not Recovered/Not Resolved]
  - Dyspnoea [Recovered/Resolved]
  - Tremor [Not Recovered/Not Resolved]
  - Dyskinesia [Not Recovered/Not Resolved]
  - Stoma site discharge [Not Recovered/Not Resolved]
  - Nervousness [Not Recovered/Not Resolved]
  - Therapeutic product effect increased [Not Recovered/Not Resolved]
  - Therapeutic product effect delayed [Not Recovered/Not Resolved]

NARRATIVE: CASE EVENT DATE: 20240101
